FAERS Safety Report 6539626-8 (Version None)
Quarter: 2010Q1

REPORT INFORMATION
  Report Type: 
  Country: None (occurrence: None)
  Receive Date: 20100115
  Receipt Date: 20100104
  Transmission Date: 20100710
  Serious: No
  Sender: FDA-Public Use
  Company Number: US-JNJFOC-20091101610

PATIENT
  Sex: Female

DRUGS (5)
  1. INVEGA [Suspect]
     Indication: ANXIETY
     Route: 048
  2. INVEGA [Suspect]
     Indication: DEPRESSION
     Route: 048
  3. INVEGA [Suspect]
     Indication: SCHIZOAFFECTIVE DISORDER
     Route: 048
  4. WELLBUTRIN XL [Concomitant]
     Indication: DEPRESSION
  5. AMBIEN CR [Concomitant]
     Indication: INSOMNIA

REACTIONS (2)
  - BLOOD PROLACTIN INCREASED [None]
  - GALACTORRHOEA [None]
